FAERS Safety Report 17584599 (Version 2)
Quarter: 2020Q2

REPORT INFORMATION
  Report Type: Spontaneous
  Country: US (occurrence: US)
  Receive Date: 20200326
  Receipt Date: 20200406
  Transmission Date: 20200713
  Serious: Yes (Other)
  Sender: FDA-Public Use
  Company Number: US-PFIZER INC-2020125820

PATIENT
  Age: 75 Year
  Sex: Female

DRUGS (1)
  1. DILANTIN [Suspect]
     Active Substance: PHENYTOIN
     Dosage: 300 MG, DAILY AT BEDTIME (THREE 100MG)
     Route: 048
     Dates: start: 20200323

REACTIONS (2)
  - Impaired driving ability [Unknown]
  - Seizure [Unknown]
